FAERS Safety Report 7727142-7 (Version None)
Quarter: 2011Q3

REPORT INFORMATION
  Report Type: 
  Country: None (occurrence: None)
  Receive Date: 20110902
  Receipt Date: 20101215
  Transmission Date: 20111222
  Serious: No
  Sender: FDA-Public Use
  Company Number: US-BAYER-2010-007988

PATIENT
  Age: 57 Year
  Sex: Female

DRUGS (2)
  1. CIPRO [Suspect]
     Indication: DEVICE RELATED INFECTION
     Route: 048
  2. CHEMOTHERAPEUTICS NOS [Concomitant]

REACTIONS (1)
  - URTICARIA [None]
